FAERS Safety Report 6789791-2 (Version None)
Quarter: 2010Q2

REPORT INFORMATION
  Report Type: 
  Country: None (occurrence: None)
  Receive Date: 20100624
  Receipt Date: 20100616
  Transmission Date: 20101027
  Serious: Yes (Other)
  Sender: FDA-Public Use
  Company Number: US-JNJFOC-20100407114

PATIENT
  Sex: Female
  Weight: 68.04 kg

DRUGS (6)
  1. SANDOZ FENTANYL TRANSDERMAL SYSTEM [Suspect]
     Indication: BACK PAIN
     Dosage: NDC 0781-7112-55
     Route: 062
  2. SANDOZ FENTANYL TRANSDERMAL SYSTEM [Suspect]
     Route: 062
  3. SYNTHROID [Concomitant]
     Indication: HYPOTHYROIDISM
     Route: 048
  4. METOPROLOL TARTRATE [Concomitant]
     Indication: CARDIAC MURMUR
     Route: 048
  5. EFFEXOR [Concomitant]
     Indication: DEPRESSION
     Route: 048
  6. SIMVASTATIN [Concomitant]
     Indication: BLOOD CHOLESTEROL INCREASED
     Route: 048

REACTIONS (2)
  - BACK PAIN [None]
  - INTERVERTEBRAL DISC PROTRUSION [None]
